FAERS Safety Report 4449095-X (Version None)
Quarter: 2004Q3

REPORT INFORMATION
  Report Type: 
  Country: None (occurrence: None)
  Receive Date: 20040910
  Receipt Date: 20040903
  Transmission Date: 20050211
  Serious: Yes (Life-Threatening, Hospitalization)
  Sender: FDA-Public Use
  Company Number: 2004PK01384

PATIENT
  Age: 69 Year
  Sex: Male
  Weight: 76.8 kg

DRUGS (7)
  1. IRESSA [Suspect]
     Indication: TRANSITIONAL CELL CARCINOMA
     Dosage: 250 MG DAILY PO
     Route: 048
     Dates: start: 20040615
  2. GEMCITABINE [Suspect]
     Indication: TRANSITIONAL CELL CARCINOMA
     Dosage: 2313 MG/M2 IV
     Route: 042
     Dates: start: 20040615, end: 20040615
  3. GEMCITABINE [Suspect]
     Indication: TRANSITIONAL CELL CARCINOMA
     Dosage: 2313 MG/M2 IV
     Route: 042
     Dates: start: 20040803, end: 20040803
  4. CISPLATIN [Suspect]
     Indication: TRANSITIONAL CELL CARCINOMA
     Dosage: 129 MG/M2 IV
     Route: 042
     Dates: start: 20040615, end: 20040615
  5. CISPLATIN [Suspect]
     Indication: TRANSITIONAL CELL CARCINOMA
     Dosage: 129 MG/M2 IV
     Route: 042
     Dates: start: 20040818, end: 20040818
  6. MOLSIDOMIN [Concomitant]
  7. RAMIPRIL [Concomitant]

REACTIONS (2)
  - HYPERTENSIVE CRISIS [None]
  - PULMONARY OEDEMA [None]
